FAERS Safety Report 23610108 (Version 1)
Quarter: 2024Q1

REPORT INFORMATION
  Report Type: Spontaneous
  Country: PR (occurrence: US)
  Receive Date: 20240308
  Receipt Date: 20240308
  Transmission Date: 20240410
  Serious: No
  Sender: FDA-Public Use
  Company Number: PR-PHARMING-PHAUS2024000200

PATIENT

DRUGS (3)
  1. RUCONEST [Suspect]
     Active Substance: CONESTAT ALFA
     Indication: Hereditary angioedema
     Dosage: 4200 IU, TWICE WEEKLY
     Route: 042
     Dates: start: 202302
  2. RUCONEST [Suspect]
     Active Substance: CONESTAT ALFA
     Indication: Hereditary angioedema
     Dosage: UNK
     Route: 042
  3. FIRAZYR [Concomitant]
     Active Substance: ICATIBANT ACETATE
     Indication: Hereditary angioedema

REACTIONS (4)
  - Contusion [Unknown]
  - Oral discharge [Unknown]
  - Condition aggravated [Unknown]
  - Intentional product use issue [Unknown]
